FAERS Safety Report 17814183 (Version 5)
Quarter: 2020Q3

REPORT INFORMATION
  Report Type: Report from Study
  Country: US (occurrence: US)
  Receive Date: 20200521
  Receipt Date: 20200902
  Transmission Date: 20201102
  Serious: Yes (Hospitalization, Other)
  Sender: FDA-Public Use
  Company Number: US-AGIOS-2004US01886

PATIENT

DRUGS (3)
  1. TIBSOVO [Suspect]
     Active Substance: IVOSIDENIB
     Dosage: 250 MILLIGRAM, 2 TABLETS (500  MG), QD
     Route: 048
     Dates: start: 20200402
  2. TIBSOVO [Suspect]
     Active Substance: IVOSIDENIB
     Indication: PANCREATIC CARCINOMA
     Dosage: 250 MILLIGRAM, 2 TABLETS (500  MG), QD
     Route: 048
     Dates: start: 20200402
  3. TIBSOVO [Suspect]
     Active Substance: IVOSIDENIB
     Dosage: 250 MILLIGRAM, 2 TABLETS (500  MG), QD
     Route: 048
     Dates: start: 20200406

REACTIONS (6)
  - Muscle twitching [Unknown]
  - Off label use [Not Recovered/Not Resolved]
  - Device dislocation [Unknown]
  - Infection [Unknown]
  - Blood disorder [Unknown]
  - Product administration interrupted [Unknown]

NARRATIVE: CASE EVENT DATE: 20200402
